FAERS Safety Report 8634000 (Version 2)
Quarter: 2013Q4

REPORT INFORMATION
  Report Type: Spontaneous
  Country: US (occurrence: US)
  Receive Date: 20120626
  Receipt Date: 20131204
  Transmission Date: 20140711
  Serious: No
  Sender: FDA-Public Use
  Company Number: US-ASTRAZENECA-2012SE35817

PATIENT
  Age: 63 Year
  Sex: Female

DRUGS (11)
  1. NEXIUM [Suspect]
     Dosage: ONCE A DAY
     Route: 048
     Dates: start: 2002
  2. NEXIUM [Suspect]
     Route: 048
     Dates: start: 20120118
  3. VITAMINS [Concomitant]
     Dates: start: 2002
  4. CALCIUM CITRATE [Concomitant]
     Dates: start: 2002
  5. METOPROLOL [Concomitant]
     Dates: start: 2002
  6. NICOTINE [Concomitant]
     Dates: start: 2002
  7. ENALAPRIL MALEATE [Concomitant]
     Dates: start: 20120108
  8. FUROSEMIDE [Concomitant]
     Dates: start: 20120403
  9. METFORMIN HCL [Concomitant]
     Dates: start: 20120401
  10. METOPROLOL TARTRATE [Concomitant]
     Dates: start: 20120401
  11. PLAVIX [Concomitant]
     Dates: start: 20120124

REACTIONS (4)
  - Osteoporosis [Unknown]
  - Ankle fracture [Unknown]
  - Diabetes mellitus [Unknown]
  - Vitamin D deficiency [Unknown]
